FAERS Safety Report 23165858 (Version 1)
Quarter: 2023Q4

REPORT INFORMATION
  Report Type: Spontaneous
  Country: US (occurrence: US)
  Receive Date: 20231109
  Receipt Date: 20231109
  Transmission Date: 20240110
  Serious: No
  Sender: FDA-Public Use
  Company Number: US-MYLANLABS-2023M1118868

PATIENT
  Age: 71 Year
  Sex: Male

DRUGS (2)
  1. SERTRALINE [Suspect]
     Active Substance: SERTRALINE HYDROCHLORIDE
     Indication: Stress
     Dosage: 50 MILLIGRAM, QD
     Route: 065
     Dates: start: 2021
  2. PREGABALIN [Suspect]
     Active Substance: PREGABALIN
     Indication: Partial seizures
     Dosage: 50 MILLIGRAM, BID
     Route: 065
     Dates: start: 2021

REACTIONS (6)
  - Somnolence [Unknown]
  - Blood pressure increased [Unknown]
  - Dizziness [Unknown]
  - Amnesia [Unknown]
  - Brain fog [Unknown]
  - Drug ineffective [Unknown]

NARRATIVE: CASE EVENT DATE: 20210101
